FAERS Safety Report 22747369 (Version 4)
Quarter: 2024Q1

REPORT INFORMATION
  Report Type: Report from Study
  Country: US (occurrence: US)
  Receive Date: 20230725
  Receipt Date: 20240315
  Transmission Date: 20240409
  Serious: Yes (Other)
  Sender: FDA-Public Use
  Company Number: US-UCBSA-2023036676

PATIENT
  Age: 55 Year
  Sex: Male
  Weight: 58.957 kg

DRUGS (2)
  1. FINTEPLA [Suspect]
     Active Substance: FENFLURAMINE
     Indication: Severe myoclonic epilepsy of infancy
     Dosage: 5.9 MILLILITER, 2X/DAY (BID)
     Dates: start: 20220830
  2. FINTEPLA [Suspect]
     Active Substance: FENFLURAMINE
     Indication: Seizure
     Dosage: 5.9 MILLIGRAM/KILOGRAM/DAY (TOTAL DOSE 11.8 MG/DAY)

REACTIONS (3)
  - Aortic valve incompetence [Unknown]
  - Pulmonary arterial pressure increased [Not Recovered/Not Resolved]
  - Left ventricular hypertrophy [Unknown]

NARRATIVE: CASE EVENT DATE: 20230320
